FAERS Safety Report 15632875 (Version 2)
Quarter: 2020Q3

REPORT INFORMATION
  Report Type: Spontaneous
  Country: US (occurrence: US)
  Receive Date: 20181119
  Receipt Date: 20200803
  Transmission Date: 20201102
  Serious: Yes (Death, Hospitalization)
  Sender: FDA-Public Use
  Company Number: US-JNJFOC-20181122038

PATIENT
  Age: 89 Year
  Sex: Female
  Weight: 71.1 kg

DRUGS (1)
  1. XARELTO [Suspect]
     Active Substance: RIVAROXABAN
     Indication: PRODUCT USED FOR UNKNOWN INDICATION
     Route: 048
     Dates: start: 20160617, end: 20161117

REACTIONS (4)
  - Aortic aneurysm rupture [Fatal]
  - Sepsis [Fatal]
  - Retroperitoneal haemorrhage [Fatal]
  - Myocardial infarction [Fatal]

NARRATIVE: CASE EVENT DATE: 201611
